FAERS Safety Report 4880861-2 (Version None)
Quarter: 2005Q4

REPORT INFORMATION
  Report Type: 
  Country: None (occurrence: None)
  Receive Date: 20051223
  Receipt Date: 20051114
  Transmission Date: 20060501
  Serious: No
  Sender: FDA-Public Use
  Company Number: 05P-163-0317196-00

PATIENT
  Age: 65 Year
  Sex: Female
  Weight: 83.0083 kg

DRUGS (14)
  1. HUMIRA [Suspect]
     Indication: RHEUMATOID ARTHRITIS
     Dosage: 40 MG 1 IN 2 WK, SUBCUTANEOUS
     Route: 058
     Dates: start: 20051001, end: 20051001
  2. SALSALATE [Concomitant]
  3. PREDNISONE [Concomitant]
  4. GLIBENCLAMIDE [Concomitant]
  5. IRBESARTAN [Concomitant]
  6. B-KOMPLEX ^LECIVA^ [Concomitant]
  7. FOLIC ACID [Concomitant]
  8. OMEPRAZOLE [Concomitant]
  9. MORPHINE [Concomitant]
  10. HYDROCODONE BITARTRATE [Concomitant]
  11. ABILIFY [Concomitant]
  12. ZOCLOR [Concomitant]
  13. IMIPRAMINE HCL [Concomitant]
  14. OXYGEN [Concomitant]

REACTIONS (5)
  - BACK PAIN [None]
  - BLOOD CHOLESTEROL DECREASED [None]
  - HIGH DENSITY LIPOPROTEIN DECREASED [None]
  - PAIN IN EXTREMITY [None]
  - RASH [None]
